FAERS Safety Report 4769874-9 (Version None)
Quarter: 2005Q3

REPORT INFORMATION
  Report Type: 
  Country: None (occurrence: None)
  Receive Date: 20050915
  Receipt Date: 20050812
  Transmission Date: 20060218
  Serious: Yes (Hospitalization)
  Sender: FDA-Public Use
  Company Number: SEWYE907115AUG05

PATIENT
  Sex: Male

DRUGS (4)
  1. ENBREL [Suspect]
     Indication: RHEUMATOID ARTHRITIS
     Dosage: DOSE REGIMEN WAS NOT PROVIDED
     Route: 058
     Dates: start: 20040401, end: 20050701
  2. METHOTREXATE [Concomitant]
     Dates: start: 20031101, end: 20050723
  3. CYCLOSPORINE [Concomitant]
     Dates: start: 20041201, end: 20050601
  4. KETOPROFEN [Concomitant]
     Dates: end: 20050601

REACTIONS (1)
  - MENINGITIS [None]
